FAERS Safety Report 20410893 (Version 2)
Quarter: 2022Q1

REPORT INFORMATION
  Report Type: Spontaneous
  Country: US (occurrence: US)
  Receive Date: 20220201
  Receipt Date: 20220224
  Transmission Date: 20220423
  Serious: Yes (Other)
  Sender: FDA-Public Use
  Company Number: US-BIOGEN-2022BI01090496

PATIENT
  Age: 63 Year
  Sex: Female

DRUGS (3)
  1. TECFIDERA [Suspect]
     Active Substance: DIMETHYL FUMARATE
     Indication: Multiple sclerosis
     Route: 065
     Dates: start: 20171128
  2. TECFIDERA [Suspect]
     Active Substance: DIMETHYL FUMARATE
     Route: 065
  3. TECFIDERA [Suspect]
     Active Substance: DIMETHYL FUMARATE
     Dosage: MAINTENANCE DOSE
     Route: 048
     Dates: start: 201711

REACTIONS (6)
  - Cerebrovascular accident [Recovered/Resolved]
  - Gait inability [Recovered/Resolved]
  - Aphasia [Recovered/Resolved]
  - Dysarthria [Unknown]
  - Fall [Recovered/Resolved]
  - Motor dysfunction [Unknown]

NARRATIVE: CASE EVENT DATE: 20211121
